APPROVED DRUG PRODUCT: GILDESS 24 FE
Active Ingredient: ETHINYL ESTRADIOL; NORETHINDRONE ACETATE
Strength: 0.02MG;1MG
Dosage Form/Route: TABLET;ORAL
Application: A090293 | Product #001 | TE Code: AB
Applicant: PH HEALTH LTD
Approved: Dec 1, 2014 | RLD: No | RS: No | Type: RX